FAERS Safety Report 9472218 (Version 1)
Quarter: 2013Q3

REPORT INFORMATION
  Report Type: Spontaneous
  Country: US (occurrence: None)
  Receive Date: 20130821
  Receipt Date: 20130821
  Transmission Date: 20140515
  Serious: Yes (Other)
  Sender: FDA-Public Use
  Company Number: None

PATIENT
  Age: 58 Year
  Sex: Male
  Weight: 117.94 kg

DRUGS (1)
  1. BOTOX [Suspect]
     Dates: start: 201303, end: 201305

REACTIONS (3)
  - Extraocular muscle disorder [None]
  - Blindness [None]
  - Eye disorder [None]
